FAERS Safety Report 9700663 (Version 2)
Quarter: 2013Q4

REPORT INFORMATION
  Report Type: Spontaneous
  Country: RU (occurrence: RU)
  Receive Date: 20131121
  Receipt Date: 20131210
  Transmission Date: 20140711
  Serious: Yes (Other)
  Sender: FDA-Public Use
  Company Number: PHHY2013RU131622

PATIENT
  Sex: Female

DRUGS (1)
  1. FEMARA [Suspect]
     Dosage: UNK UKN, UNK

REACTIONS (4)
  - Tinnitus [Recovered/Resolved]
  - Coordination abnormal [Recovered/Resolved]
  - Visual impairment [Recovered/Resolved]
  - Dysgeusia [Recovered/Resolved]
